FAERS Safety Report 25379858 (Version 1)
Quarter: 2025Q2

REPORT INFORMATION
  Report Type: Spontaneous
  Country: FR (occurrence: FR)
  Receive Date: 20250530
  Receipt Date: 20250530
  Transmission Date: 20250716
  Serious: Yes (Death)
  Sender: MYLAN
  Company Number: None

PATIENT
  Age: 45 Year
  Sex: Male
  Weight: 94 kg

DRUGS (56)
  1. FINASTERIDE [Suspect]
     Active Substance: FINASTERIDE
     Indication: Urinary tract disorder
     Dosage: 5 MILLIGRAM, QD
  2. FINASTERIDE [Suspect]
     Active Substance: FINASTERIDE
     Dosage: 5 MILLIGRAM, QD
     Route: 048
  3. FINASTERIDE [Suspect]
     Active Substance: FINASTERIDE
     Dosage: 5 MILLIGRAM, QD
     Route: 048
  4. FINASTERIDE [Suspect]
     Active Substance: FINASTERIDE
     Dosage: 5 MILLIGRAM, QD
  5. TAMSULOSIN [Suspect]
     Active Substance: TAMSULOSIN
     Indication: Urinary tract disorder
     Dosage: 0.4 MILLIGRAM, QD
  6. TAMSULOSIN [Suspect]
     Active Substance: TAMSULOSIN
     Dosage: 0.4 MILLIGRAM, QD
     Route: 048
  7. TAMSULOSIN [Suspect]
     Active Substance: TAMSULOSIN
     Dosage: 0.4 MILLIGRAM, QD
     Route: 048
  8. TAMSULOSIN [Suspect]
     Active Substance: TAMSULOSIN
     Dosage: 0.4 MILLIGRAM, QD
  9. PAROXETINE [Suspect]
     Active Substance: PAROXETINE
     Indication: Depression
     Dosage: 10 MILLIGRAM, QD
  10. PAROXETINE [Suspect]
     Active Substance: PAROXETINE
     Dosage: 10 MILLIGRAM, QD
     Route: 048
  11. PAROXETINE [Suspect]
     Active Substance: PAROXETINE
     Dosage: 10 MILLIGRAM, QD
     Route: 048
  12. PAROXETINE [Suspect]
     Active Substance: PAROXETINE
     Dosage: 10 MILLIGRAM, QD
  13. TRIMEBUTINE [Suspect]
     Active Substance: TRIMEBUTINE
     Indication: Gastrointestinal pain
     Dosage: 300 MILLIGRAM, QD
  14. TRIMEBUTINE [Suspect]
     Active Substance: TRIMEBUTINE
     Dosage: 300 MILLIGRAM, QD
     Route: 048
  15. TRIMEBUTINE [Suspect]
     Active Substance: TRIMEBUTINE
     Dosage: 300 MILLIGRAM, QD
     Route: 048
  16. TRIMEBUTINE [Suspect]
     Active Substance: TRIMEBUTINE
     Dosage: 300 MILLIGRAM, QD
  17. PANTOPRAZOLE [Suspect]
     Active Substance: PANTOPRAZOLE
     Indication: Gastrointestinal disorder
     Dosage: 40 MILLIGRAM, QD
  18. PANTOPRAZOLE [Suspect]
     Active Substance: PANTOPRAZOLE
     Dosage: 40 MILLIGRAM, QD
     Route: 048
  19. PANTOPRAZOLE [Suspect]
     Active Substance: PANTOPRAZOLE
     Dosage: 40 MILLIGRAM, QD
     Route: 048
  20. PANTOPRAZOLE [Suspect]
     Active Substance: PANTOPRAZOLE
     Dosage: 40 MILLIGRAM, QD
  21. MIANSERIN [Suspect]
     Active Substance: MIANSERIN
     Indication: Depression
     Dosage: 30 MILLIGRAM, QD
  22. MIANSERIN [Suspect]
     Active Substance: MIANSERIN
     Dosage: 30 MILLIGRAM, QD
     Route: 048
  23. MIANSERIN [Suspect]
     Active Substance: MIANSERIN
     Dosage: 30 MILLIGRAM, QD
     Route: 048
  24. MIANSERIN [Suspect]
     Active Substance: MIANSERIN
     Dosage: 30 MILLIGRAM, QD
  25. ACETAMINOPHEN [Suspect]
     Active Substance: ACETAMINOPHEN
     Indication: Pain
  26. ACETAMINOPHEN [Suspect]
     Active Substance: ACETAMINOPHEN
     Route: 048
  27. ACETAMINOPHEN [Suspect]
     Active Substance: ACETAMINOPHEN
     Route: 048
  28. ACETAMINOPHEN [Suspect]
     Active Substance: ACETAMINOPHEN
  29. MESTINON [Suspect]
     Active Substance: PYRIDOSTIGMINE BROMIDE
     Indication: Intestinal atony
     Dosage: 120 MILLIGRAM, QD
  30. MESTINON [Suspect]
     Active Substance: PYRIDOSTIGMINE BROMIDE
     Dosage: 120 MILLIGRAM, QD
     Route: 048
  31. MESTINON [Suspect]
     Active Substance: PYRIDOSTIGMINE BROMIDE
     Dosage: 120 MILLIGRAM, QD
     Route: 048
  32. MESTINON [Suspect]
     Active Substance: PYRIDOSTIGMINE BROMIDE
     Dosage: 120 MILLIGRAM, QD
  33. CYAMEMAZINE [Suspect]
     Active Substance: CYAMEMAZINE
     Indication: Mental disorder
     Dosage: 225 MILLIGRAM, QD
     Dates: start: 20250221
  34. CYAMEMAZINE [Suspect]
     Active Substance: CYAMEMAZINE
     Dosage: 225 MILLIGRAM, QD
     Route: 048
     Dates: start: 20250221
  35. CYAMEMAZINE [Suspect]
     Active Substance: CYAMEMAZINE
     Dosage: 225 MILLIGRAM, QD
     Route: 048
     Dates: start: 20250221
  36. CYAMEMAZINE [Suspect]
     Active Substance: CYAMEMAZINE
     Dosage: 225 MILLIGRAM, QD
     Dates: start: 20250221
  37. VALIUM [Suspect]
     Active Substance: DIAZEPAM
     Indication: Mental disorder
     Dosage: 45 GTT DROPS, QD
  38. VALIUM [Suspect]
     Active Substance: DIAZEPAM
     Dosage: 45 GTT DROPS, QD
     Route: 048
  39. VALIUM [Suspect]
     Active Substance: DIAZEPAM
     Dosage: 45 GTT DROPS, QD
     Route: 048
  40. VALIUM [Suspect]
     Active Substance: DIAZEPAM
     Dosage: 45 GTT DROPS, QD
  41. LORMETAZEPAM [Suspect]
     Active Substance: LORMETAZEPAM
     Indication: Insomnia
     Dosage: 1 MILLIGRAM, QD
  42. LORMETAZEPAM [Suspect]
     Active Substance: LORMETAZEPAM
     Dosage: 1 MILLIGRAM, QD
     Route: 048
  43. LORMETAZEPAM [Suspect]
     Active Substance: LORMETAZEPAM
     Dosage: 1 MILLIGRAM, QD
     Route: 048
  44. LORMETAZEPAM [Suspect]
     Active Substance: LORMETAZEPAM
     Dosage: 1 MILLIGRAM, QD
  45. POLYETHYLENE GLYCOL 4000 [Suspect]
     Active Substance: POLYETHYLENE GLYCOL 4000
     Indication: Constipation
     Dosage: 40 GRAM, QD
  46. POLYETHYLENE GLYCOL 4000 [Suspect]
     Active Substance: POLYETHYLENE GLYCOL 4000
     Dosage: 40 GRAM, QD
     Route: 048
  47. POLYETHYLENE GLYCOL 4000 [Suspect]
     Active Substance: POLYETHYLENE GLYCOL 4000
     Dosage: 40 GRAM, QD
     Route: 048
  48. POLYETHYLENE GLYCOL 4000 [Suspect]
     Active Substance: POLYETHYLENE GLYCOL 4000
     Dosage: 40 GRAM, QD
  49. ZUCLOPENTHIXOL [Suspect]
     Active Substance: ZUCLOPENTHIXOL
     Indication: Mental disorder
     Dosage: 4 DOSAGE FORM, BIWEEKLY
  50. ZUCLOPENTHIXOL [Suspect]
     Active Substance: ZUCLOPENTHIXOL
     Dosage: 4 DOSAGE FORM, BIWEEKLY
     Route: 030
  51. ZUCLOPENTHIXOL [Suspect]
     Active Substance: ZUCLOPENTHIXOL
     Dosage: 4 DOSAGE FORM, BIWEEKLY
     Route: 030
  52. ZUCLOPENTHIXOL [Suspect]
     Active Substance: ZUCLOPENTHIXOL
     Dosage: 4 DOSAGE FORM, BIWEEKLY
  53. MINERAL OIL [Suspect]
     Active Substance: MINERAL OIL
     Indication: Constipation
     Dosage: 2 DOSAGE FORM, QD
  54. MINERAL OIL [Suspect]
     Active Substance: MINERAL OIL
     Dosage: 2 DOSAGE FORM, QD
     Route: 048
  55. MINERAL OIL [Suspect]
     Active Substance: MINERAL OIL
     Dosage: 2 DOSAGE FORM, QD
     Route: 048
  56. MINERAL OIL [Suspect]
     Active Substance: MINERAL OIL
     Dosage: 2 DOSAGE FORM, QD

REACTIONS (1)
  - Cardio-respiratory arrest [Fatal]

NARRATIVE: CASE EVENT DATE: 20250505
